FAERS Safety Report 20878975 (Version 2)
Quarter: 2022Q2

REPORT INFORMATION
  Report Type: Report from Study
  Country: PE (occurrence: PE)
  Receive Date: 20220526
  Receipt Date: 20220630
  Transmission Date: 20220721
  Serious: Yes (Other)
  Sender: FDA-Public Use
  Company Number: PE-JNJFOC-20220549098

PATIENT
  Age: 61 Year
  Sex: Female

DRUGS (3)
  1. SIMPONI [Suspect]
     Active Substance: GOLIMUMAB
     Indication: Rheumatoid arthritis
     Route: 058
     Dates: start: 20210716
  2. SIMPONI [Suspect]
     Active Substance: GOLIMUMAB
  3. FOLIC ACID [Concomitant]
     Active Substance: FOLIC ACID

REACTIONS (3)
  - Nephrolithiasis [Not Recovered/Not Resolved]
  - Urinary tract infection [Not Recovered/Not Resolved]
  - Musculoskeletal chest pain [Not Recovered/Not Resolved]

NARRATIVE: CASE EVENT DATE: 20220521
